FAERS Safety Report 6055479-9 (Version None)
Quarter: 2009Q1

REPORT INFORMATION
  Report Type: 
  Country: None (occurrence: None)
  Receive Date: 20090123
  Receipt Date: 20090108
  Transmission Date: 20090719
  Serious: Yes (Hospitalization, Other)
  Sender: FDA-Public Use
  Company Number: DSU-2009-00048

PATIENT
  Age: 61 Year
  Sex: Female

DRUGS (4)
  1. BENICAR [Suspect]
     Indication: HYPERTENSION
     Dosage: PER ORAL, PER ORAL
     Route: 048
     Dates: start: 20080904, end: 20080918
  2. SYNTHROID [Suspect]
     Indication: HYPOTHYROIDISM
     Dosage: 150 MCG (150 MCG, QD), PER ORAL, 112 MCG (112 MCG, QD), PER  ORAL
     Route: 048
     Dates: end: 20080801
  3. SYNTHROID [Suspect]
     Indication: HYPOTHYROIDISM
     Dosage: 150 MCG (150 MCG, QD), PER ORAL, 112 MCG (112 MCG, QD), PER  ORAL
     Route: 048
     Dates: start: 20080801
  4. BUDESONIDE (BUDESONIDE) (TABLET) (BUDESONIDE) [Concomitant]

REACTIONS (7)
  - COELIAC DISEASE [None]
  - COLITIS [None]
  - DEHYDRATION [None]
  - DIARRHOEA [None]
  - NAUSEA [None]
  - RENAL DISORDER [None]
  - WEIGHT DECREASED [None]
